FAERS Safety Report 11940313 (Version 1)
Quarter: 2016Q1

REPORT INFORMATION
  Report Type: Spontaneous
  Country: US (occurrence: US)
  Receive Date: 20160122
  Receipt Date: 20160122
  Transmission Date: 20160526
  Serious: Yes (Hospitalization)
  Sender: FDA-Public Use
  Company Number: PHHY2016US006129

PATIENT
  Age: 24 Week
  Sex: Female

DRUGS (2)
  1. HYDROCORTISONE. [Suspect]
     Active Substance: HYDROCORTISONE
     Indication: ADRENAL INSUFFICIENCY NEONATAL
     Dosage: 1 MG/KG, UNK
     Route: 065
  2. DOPAMINE [Concomitant]
     Active Substance: DOPAMINE\DOPAMINE HYDROCHLORIDE
     Indication: HYPOTENSION
     Route: 065

REACTIONS (4)
  - Pneumatosis intestinalis [Recovered/Resolved]
  - Hypocalcaemia [Unknown]
  - Hyperkalaemia [Unknown]
  - Abdominal distension [Unknown]
